FAERS Safety Report 10526291 (Version 2)
Quarter: 2014Q4

REPORT INFORMATION
  Report Type: Spontaneous
  Country: IT (occurrence: IT)
  Receive Date: 20141018
  Receipt Date: 20141031
  Transmission Date: 20150528
  Serious: Yes (Other)
  Sender: FDA-Public Use
  Company Number: IT-009507513-1410ITA007799

PATIENT
  Age: 71 Year
  Sex: Female

DRUGS (1)
  1. FORZAAR 100 MG + 25 MG COMPRESSE RIVESTITE CON FILM [Suspect]
     Active Substance: HYDROCHLOROTHIAZIDE\LOSARTAN POTASSIUM
     Indication: HYPERTENSION
     Dosage: STRENGTH: 100 + 25 MG
     Route: 048
     Dates: start: 20130801, end: 2014

REACTIONS (1)
  - Hyponatraemic syndrome [Unknown]

NARRATIVE: CASE EVENT DATE: 20140801
